FAERS Safety Report 25144372 (Version 1)
Quarter: 2025Q2

REPORT INFORMATION
  Report Type: Spontaneous
  Country: CA (occurrence: CA)
  Receive Date: 20250401
  Receipt Date: 20250401
  Transmission Date: 20250716
  Serious: Yes (Hospitalization, Other)
  Sender: TEVA
  Company Number: CA-TEVA-VS-3316361

PATIENT
  Age: 76 Year
  Sex: Male

DRUGS (13)
  1. QUETIAPINE FUMARATE [Suspect]
     Active Substance: QUETIAPINE FUMARATE
     Indication: Post-traumatic stress disorder
     Route: 048
  2. QUETIAPINE FUMARATE [Suspect]
     Active Substance: QUETIAPINE FUMARATE
     Indication: Post-traumatic stress disorder
     Route: 048
  3. QUETIAPINE FUMARATE [Suspect]
     Active Substance: QUETIAPINE FUMARATE
     Indication: Post-traumatic stress disorder
     Route: 048
  4. QUETIAPINE FUMARATE [Suspect]
     Active Substance: QUETIAPINE FUMARATE
     Indication: Post-traumatic stress disorder
     Route: 048
  5. CLONAZEPAM [Suspect]
     Active Substance: CLONAZEPAM
     Indication: Dementia with Lewy bodies
     Route: 065
  6. OLANZAPINE [Suspect]
     Active Substance: OLANZAPINE
     Indication: Post-traumatic stress disorder
     Dosage: DOSAGE FORM: NOT SPECIFIED
     Route: 065
  7. OLANZAPINE [Suspect]
     Active Substance: OLANZAPINE
     Indication: Post-traumatic stress disorder
     Route: 065
  8. RIVASTIGMINE TARTRATE [Suspect]
     Active Substance: RIVASTIGMINE TARTRATE
     Indication: Dementia with Lewy bodies
     Route: 062
  9. LORAZEPAM [Suspect]
     Active Substance: LORAZEPAM
     Indication: Dementia with Lewy bodies
     Route: 065
  10. RISPERIDONE [Suspect]
     Active Substance: RISPERIDONE
     Indication: Post-traumatic stress disorder
     Route: 065
  11. RISPERIDONE [Suspect]
     Active Substance: RISPERIDONE
     Indication: Post-traumatic stress disorder
     Route: 065
  12. CITALOPRAM HYDROBROMIDE [Suspect]
     Active Substance: CITALOPRAM HYDROBROMIDE
     Indication: Dementia with Lewy bodies
     Route: 065
  13. LOXAPINE SUCCINATE [Suspect]
     Active Substance: LOXAPINE SUCCINATE
     Indication: Dementia with Lewy bodies
     Route: 065

REACTIONS (2)
  - Parkinsonism [Unknown]
  - Off label use [Unknown]
